FAERS Safety Report 6723281-8 (Version None)
Quarter: 2010Q2

REPORT INFORMATION
  Report Type: 
  Country: None (occurrence: None)
  Receive Date: 20100511
  Receipt Date: 20100429
  Transmission Date: 20101027
  Serious: Yes (Hospitalization)
  Sender: FDA-Public Use
  Company Number: LTI2010A00086

PATIENT
  Age: 59 Year
  Sex: Male

DRUGS (1)
  1. ACTOS [Suspect]
     Indication: TYPE 2 DIABETES MELLITUS
     Dosage: ORAL
     Route: 048
     Dates: start: 20100301, end: 20100401

REACTIONS (3)
  - MUSCLE FATIGUE [None]
  - PARAESTHESIA [None]
  - VIRAL INFECTION [None]
